FAERS Safety Report 10039702 (Version 3)
Quarter: 2014Q2

REPORT INFORMATION
  Report Type: Spontaneous
  Country: US (occurrence: US)
  Receive Date: 20140326
  Receipt Date: 20140527
  Transmission Date: 20141212
  Serious: No
  Sender: FDA-Public Use
  Company Number: US-JNJFOC-20140215653

PATIENT
  Age: 45 Year
  Sex: Male

DRUGS (11)
  1. INVEGA SUSTENNA [Suspect]
     Indication: PRODUCT USED FOR UNKNOWN INDICATION
     Route: 030
     Dates: start: 20130712
  2. LIPITOR [Concomitant]
     Route: 065
  3. BENZTROPINE [Concomitant]
     Route: 065
  4. ZYRTEC [Concomitant]
     Route: 048
  5. DEPAKOTE [Concomitant]
     Dosage: 2000MG/100MG
     Route: 048
  6. SINGULAIR [Concomitant]
     Route: 065
  7. PROTONIX [Concomitant]
     Route: 065
  8. PROPRANOLOL [Concomitant]
     Dosage: 20MG/10MG
     Route: 065
  9. ZOLOFT [Concomitant]
     Route: 065
  10. TRAZODONE [Concomitant]
     Route: 065
  11. VITAMIN B3 [Concomitant]
     Route: 065

REACTIONS (3)
  - Incorrect route of drug administration [Unknown]
  - Paraesthesia [Not Recovered/Not Resolved]
  - Muscular weakness [Not Recovered/Not Resolved]
